FAERS Safety Report 7497066-1 (Version None)
Quarter: 2011Q2

REPORT INFORMATION
  Report Type: 
  Country: None (occurrence: None)
  Receive Date: 20110523
  Receipt Date: 20110517
  Transmission Date: 20111010
  Serious: Yes (Other)
  Sender: FDA-Public Use
  Company Number: US-BAXTER-2011BH016292

PATIENT
  Age: 31 Year
  Sex: Female

DRUGS (2)
  1. HEPARIN [Suspect]
     Indication: HYPEREOSINOPHILIC SYNDROME
     Route: 041
     Dates: start: 20091201
  2. PREDNISONE [Concomitant]
     Indication: HYPEREOSINOPHILIC SYNDROME
     Route: 065

REACTIONS (2)
  - DRUG EXPOSURE DURING PREGNANCY [None]
  - HEPARIN-INDUCED THROMBOCYTOPENIA [None]
